FAERS Safety Report 5081578-4 (Version None)
Quarter: 2006Q3

REPORT INFORMATION
  Report Type: 
  Country: None (occurrence: None)
  Receive Date: 20060811
  Receipt Date: 20060727
  Transmission Date: 20061208
  Serious: Yes (Hospitalization)
  Sender: FDA-Public Use
  Company Number: ADE-SU-0013-ACT

PATIENT
  Age: 32 Year
  Sex: Female

DRUGS (9)
  1. H P ACTHAR [Suspect]
     Indication: MULTIPLE SCLEROSIS
     Dosage: 80 IU IM QD WITH TAPER
     Dates: start: 20060724
  2. AVONEX [Concomitant]
  3. LEXAPRO [Concomitant]
  4. ATIVAN [Concomitant]
  5. ZANAFLEX [Concomitant]
  6. LYRICA [Concomitant]
  7. LABETALOL HCL [Concomitant]
  8. VESICARE [Concomitant]
  9. METHOTREXATE [Concomitant]

REACTIONS (2)
  - HEADACHE [None]
  - HYPERTENSION [None]
